FAERS Safety Report 11061903 (Version 2)
Quarter: 2015Q2

REPORT INFORMATION
  Report Type: Report from Study
  Country: US (occurrence: US)
  Receive Date: 20150424
  Receipt Date: 20150428
  Transmission Date: 20150821
  Serious: Yes (Hospitalization, Other)
  Sender: FDA-Public Use
  Company Number: US-ASTRAZENECA-2014SE27331

PATIENT
  Age: 53 Year
  Sex: Female
  Weight: 79.4 kg

DRUGS (14)
  1. OMEPRAZOLE. [Suspect]
     Active Substance: OMEPRAZOLE
     Indication: GASTROOESOPHAGEAL REFLUX DISEASE
     Route: 048
     Dates: start: 20140408
  2. MEDICATION FOR CHRONIC PAIN [Concomitant]
     Indication: PAIN
  3. LISINOPRIL. [Suspect]
     Active Substance: LISINOPRIL
     Indication: HYPERTENSION
     Route: 048
  4. SPIRONOLACTONE. [Concomitant]
     Active Substance: SPIRONOLACTONE
     Indication: FLUID RETENTION
     Dates: start: 2013
  5. NEXIUM [Suspect]
     Active Substance: ESOMEPRAZOLE MAGNESIUM
     Indication: DYSPEPSIA
     Route: 048
     Dates: start: 2009
  6. PRILOSEC OTC [Suspect]
     Active Substance: OMEPRAZOLE MAGNESIUM
     Indication: GASTROOESOPHAGEAL REFLUX DISEASE
     Dosage: UNKNOWN DOSE, DAILY
     Route: 048
  7. AMLODYPINE BESYLATE [Concomitant]
     Indication: HYPERTENSION
     Dates: start: 2013
  8. NEXIUM [Suspect]
     Active Substance: ESOMEPRAZOLE MAGNESIUM
     Indication: GASTROOESOPHAGEAL REFLUX DISEASE
     Route: 048
     Dates: start: 2009
  9. TOPIRAMATE. [Concomitant]
     Active Substance: TOPIRAMATE
     Indication: HEADACHE
     Dates: start: 20140331
  10. AMLODIPINE [Concomitant]
     Active Substance: AMLODIPINE BESYLATE
     Indication: HYPERTENSION
     Route: 048
  11. GABAPENTIN. [Concomitant]
     Active Substance: GABAPENTIN
     Indication: FIBROMYALGIA
     Dates: start: 20140324
  12. TRAMADOL [Concomitant]
     Active Substance: TRAMADOL
     Indication: PAIN
     Dates: start: 20140321
  13. MEDICATION FOR FIBROMYALGIA [Concomitant]
     Indication: FIBROMYALGIA
  14. BACLOFAN [Concomitant]
     Indication: MUSCLE SPASMS
     Dates: start: 20140321

REACTIONS (36)
  - Hypertension [Recovered/Resolved]
  - Cerebral disorder [Unknown]
  - Transient ischaemic attack [Unknown]
  - Bone pain [Not Recovered/Not Resolved]
  - Headache [Unknown]
  - Gait disturbance [Unknown]
  - Adverse event [Not Recovered/Not Resolved]
  - Skin lesion [Unknown]
  - Connective tissue disorder [Unknown]
  - Fibromyalgia [Unknown]
  - Chest pain [Unknown]
  - Depression [Unknown]
  - Peripheral swelling [Unknown]
  - Arthritis [Unknown]
  - Drug dose omission [Not Recovered/Not Resolved]
  - Drug ineffective [Not Recovered/Not Resolved]
  - Migraine [Recovered/Resolved]
  - Road traffic accident [Unknown]
  - Loss of consciousness [Unknown]
  - Pain [Not Recovered/Not Resolved]
  - Lipoma [Not Recovered/Not Resolved]
  - Oesophageal perforation [Unknown]
  - Cerebral haemorrhage [Recovering/Resolving]
  - Memory impairment [Not Recovered/Not Resolved]
  - Paraesthesia [Unknown]
  - Product use issue [Unknown]
  - Weight fluctuation [Unknown]
  - Dyskinesia [Unknown]
  - Visual acuity reduced [Unknown]
  - Dysarthria [Unknown]
  - Malaise [Unknown]
  - Dyspnoea [Unknown]
  - Burning sensation [Unknown]
  - Back disorder [Not Recovered/Not Resolved]
  - Nausea [Not Recovered/Not Resolved]
  - Pruritus [Unknown]

NARRATIVE: CASE EVENT DATE: 2009
